FAERS Safety Report 24439076 (Version 1)
Quarter: 2024Q4

REPORT INFORMATION
  Report Type: Spontaneous
  Country: US (occurrence: None)
  Receive Date: 20241015
  Receipt Date: 20241015
  Transmission Date: 20250114
  Serious: Yes (Hospitalization)
  Sender: Public
  Company Number: None

PATIENT
  Age: 34 Year
  Sex: Female
  Weight: 110 kg

DRUGS (11)
  1. COSENTYX [Suspect]
     Active Substance: SECUKINUMAB
     Indication: Rheumatoid arthritis
     Dosage: FREQUENCY : MONTHLY;?
     Route: 058
     Dates: start: 20221121
  2. ALBUTEROL [Concomitant]
     Active Substance: ALBUTEROL
  3. DEXAMETHASONE [Concomitant]
     Active Substance: DEXAMETHASONE
  4. SULFASALAZINE [Concomitant]
     Active Substance: SULFASALAZINE
  5. TYLENOL [Concomitant]
     Active Substance: ACETAMINOPHEN
  6. VARAYLAR [Concomitant]
  7. D-AMPHETAMINE SALT COMBO 10MG [Concomitant]
  8. D-AMPHETAMINE ER 20MG SALT COMBO [Concomitant]
  9. BUSPIRONE [Concomitant]
     Active Substance: BUSPIRONE HYDROCHLORIDE
  10. BACLOFEN [Concomitant]
     Active Substance: BACLOFEN
  11. PROPRANOLOL [Concomitant]

REACTIONS (1)
  - Pneumonia [None]

NARRATIVE: CASE EVENT DATE: 20240916
